FAERS Safety Report 23952206 (Version 2)
Quarter: 2024Q2

REPORT INFORMATION
  Report Type: Report from Study
  Country: TH (occurrence: TH)
  Receive Date: 20240607
  Receipt Date: 20240627
  Transmission Date: 20240716
  Serious: Yes (Hospitalization, Other)
  Sender: FDA-Public Use
  Company Number: TH-BAYER-2024A078571

PATIENT
  Age: 62 Year
  Sex: Male

DRUGS (1)
  1. STIVARGA [Suspect]
     Active Substance: REGORAFENIB\REGORAFENIB MONOHYDRATE
     Indication: Hepatocellular carcinoma
     Dosage: 120 MG, QD
     Dates: start: 20240524, end: 20240531

REACTIONS (17)
  - Liver function test decreased [Unknown]
  - Hepatitis B [Unknown]
  - Dysphagia [Not Recovered/Not Resolved]
  - Renal failure [None]
  - Aspartate aminotransferase increased [Unknown]
  - Alanine aminotransferase [Unknown]
  - Blood urea abnormal [None]
  - Blood albumin abnormal [None]
  - Globulin abnormal [None]
  - Bilirubin conjugated abnormal [None]
  - Blood alkaline phosphatase abnormal [None]
  - Blood sodium abnormal [None]
  - Blood potassium abnormal [None]
  - Blood chloride abnormal [None]
  - Pyrexia [Unknown]
  - Abdominal pain [Unknown]
  - Off label use [None]

NARRATIVE: CASE EVENT DATE: 20240501
